FAERS Safety Report 6989894-3 (Version None)
Quarter: 2010Q3

REPORT INFORMATION
  Report Type: 
  Country: None (occurrence: None)
  Receive Date: 20100916
  Receipt Date: 20100326
  Transmission Date: 20110219
  Serious: Yes (Death)
  Sender: FDA-Public Use
  Company Number: US-PFIZER INC-2010006934

PATIENT
  Sex: Female
  Weight: 87.98 kg

DRUGS (7)
  1. LYRICA [Suspect]
     Indication: FIBROMYALGIA
     Dosage: 150 MG, 4X/DAY
     Dates: start: 20091215
  2. PERCOCET [Concomitant]
     Dosage: 10/325, 4X/DAY
  3. XANAX [Concomitant]
     Dosage: 1 MG, 3X/DAY
  4. SOMA [Concomitant]
     Dosage: 350 MG, 3X/DAY
  5. ZOLOFT [Concomitant]
     Dosage: 100 MG, 1X/DAY
  6. PROZAC [Concomitant]
     Dosage: 20 TO 40 MG
  7. RESTORIL [Concomitant]
     Dosage: 30 MG, AT BEDTIME

REACTIONS (1)
  - CARDIAC ARREST [None]
